FAERS Safety Report 5444883-5 (Version None)
Quarter: 2007Q3

REPORT INFORMATION
  Report Type: 
  Country: None (occurrence: None)
  Receive Date: 20070830
  Receipt Date: 20070817
  Transmission Date: 20080115
  Serious: Yes (Other)
  Sender: FDA-Public Use
  Company Number: B0484518A

PATIENT
  Age: 76 Year
  Sex: Female

DRUGS (4)
  1. AMOXICILLIN TRIHYDRATE [Suspect]
     Indication: INFLUENZA LIKE ILLNESS
  2. ACETYLCYSTEINE [Concomitant]
  3. DEFLAZACORT [Concomitant]
  4. ENALAPRIL MALEATE [Concomitant]

REACTIONS (4)
  - ACHOLIA [None]
  - CHOLESTASIS [None]
  - HEPATOTOXICITY [None]
  - PRURITUS [None]
